FAERS Safety Report 17584384 (Version 3)
Quarter: 2020Q2

REPORT INFORMATION
  Report Type: Spontaneous
  Country: US (occurrence: US)
  Receive Date: 20200326
  Receipt Date: 20200512
  Transmission Date: 20200713
  Serious: No
  Sender: FDA-Public Use
  Company Number: US-PFIZER INC-2020122773

PATIENT
  Age: 61 Year
  Sex: Male

DRUGS (1)
  1. XELJANZ XR [Suspect]
     Active Substance: TOFACITINIB CITRATE
     Indication: RHEUMATOID ARTHRITIS
     Dosage: 11 MG, DAILY
     Route: 048
     Dates: start: 202002

REACTIONS (5)
  - Dyspnoea [Unknown]
  - Stress [Unknown]
  - Intentional dose omission [Unknown]
  - Therapeutic response unexpected [Unknown]
  - Depression [Unknown]

NARRATIVE: CASE EVENT DATE: 2020
